FAERS Safety Report 5482658-1 (Version None)
Quarter: 2007Q4

REPORT INFORMATION
  Report Type: 
  Country: None (occurrence: None)
  Receive Date: 20071011
  Receipt Date: 20071002
  Transmission Date: 20080405
  Serious: Yes (Other)
  Sender: FDA-Public Use
  Company Number: US-JNJFOC-20071001764

PATIENT
  Sex: Male

DRUGS (2)
  1. CHILDRENS TYLENOL PLUS COUGH + RUNNY NOSE CHERRY [Suspect]
     Indication: RHINORRHOEA
  2. CHILDRENS TYLENOL PLUS COUGH + RUNNY NOSE CHERRY [Suspect]
     Indication: COUGH

REACTIONS (8)
  - ASTHMA [None]
  - ERYTHEMA [None]
  - EYE OEDEMA [None]
  - FEELING HOT [None]
  - OEDEMA PERIPHERAL [None]
  - PENILE OEDEMA [None]
  - SCROTAL OEDEMA [None]
  - SWELLING [None]
